FAERS Safety Report 18725083 (Version 1)
Quarter: 2021Q1

REPORT INFORMATION
  Report Type: Spontaneous
  Country: US (occurrence: US)
  Receive Date: 20210111
  Receipt Date: 20210111
  Transmission Date: 20210419
  Serious: No
  Sender: FDA-Public Use
  Company Number: None

PATIENT
  Age: 30 Year
  Sex: Male
  Weight: 98.55 kg

DRUGS (1)
  1. BUPRENORPHINE?NALOXONE [Suspect]
     Active Substance: BUPRENORPHINE HYDROCHLORIDE\NALOXONE HYDROCHLORIDE
     Indication: DRUG DEPENDENCE

REACTIONS (7)
  - Hyperhidrosis [None]
  - Product substitution issue [None]
  - Dizziness [None]
  - Pain of skin [None]
  - Nausea [None]
  - Micturition urgency [None]
  - Insomnia [None]
